FAERS Safety Report 6279234-X (Version None)
Quarter: 2009Q3

REPORT INFORMATION
  Report Type: 
  Country: None (occurrence: None)
  Receive Date: 20090720
  Receipt Date: 20090720
  Transmission Date: 20100115
  Serious: Yes (Other)
  Sender: FDA-Public Use
  Company Number: None

PATIENT
  Age: 50 Year
  Sex: Female
  Weight: 47.6277 kg

DRUGS (1)
  1. ACTONEL [Suspect]
     Indication: OSTEOPOROSIS
     Dosage: 150MG ONCE A MONTH PO
     Route: 048
     Dates: start: 20090603, end: 20090703

REACTIONS (10)
  - ABDOMINAL PAIN UPPER [None]
  - ARTHRALGIA [None]
  - BLOOD PRESSURE INCREASED [None]
  - DIZZINESS [None]
  - DYSPEPSIA [None]
  - GASTRIC DISORDER [None]
  - GINGIVAL PAIN [None]
  - GINGIVITIS [None]
  - MYALGIA [None]
  - TOOTHACHE [None]
